FAERS Safety Report 22085303 (Version 4)
Quarter: 2023Q2

REPORT INFORMATION
  Report Type: Spontaneous
  Country: US (occurrence: US)
  Receive Date: 20230310
  Receipt Date: 20230410
  Transmission Date: 20230722
  Serious: Yes (Other)
  Sender: FDA-Public Use
  Company Number: US-PFIZER INC-2021130067

PATIENT
  Age: 72 Year
  Sex: Female

DRUGS (2)
  1. XELJANZ XR [Suspect]
     Active Substance: TOFACITINIB CITRATE
     Dosage: 11 MG, 1X/DAY
     Route: 048
  2. XELJANZ XR [Suspect]
     Active Substance: TOFACITINIB CITRATE
     Dosage: 11 MG, DAILY; (1 DAILY)
     Route: 048

REACTIONS (8)
  - Rib fracture [Unknown]
  - Product dose omission issue [Unknown]
  - Fall [Unknown]
  - Viral infection [Unknown]
  - Arthralgia [Unknown]
  - Pain [Unknown]
  - Illness [Unknown]
  - Limb injury [Unknown]
